FAERS Safety Report 9859001 (Version 1)
Quarter: 2014Q1

REPORT INFORMATION
  Report Type: Spontaneous
  Country: BR (occurrence: BR)
  Receive Date: 20140131
  Receipt Date: 20140131
  Transmission Date: 20141002
  Serious: Yes (Hospitalization)
  Sender: FDA-Public Use
  Company Number: BR-PFIZER INC-2014029162

PATIENT
  Age: 79 Year
  Sex: Male
  Weight: 71 kg

DRUGS (2)
  1. LIPITOR [Suspect]
     Indication: BLOOD CHOLESTEROL
     Dosage: 40 MG, DAILY
     Route: 048
     Dates: start: 2004, end: 2007
  2. XALATAN [Suspect]
     Dosage: 3 UG, 1X/DAY AT NIGHT
     Route: 047
     Dates: start: 2006

REACTIONS (3)
  - Arrhythmia [Unknown]
  - Asthma [Unknown]
  - Lung disorder [Unknown]
